FAERS Safety Report 23982962 (Version 2)
Quarter: 2024Q3

REPORT INFORMATION
  Report Type: Report from Study
  Country: US (occurrence: US)
  Receive Date: 20240617
  Receipt Date: 20240801
  Transmission Date: 20241017
  Serious: Yes (Other)
  Sender: RADIUS PHARM
  Company Number: US-RADIUS HEALTH, INC.-2024US004113

PATIENT
  Sex: Female

DRUGS (7)
  1. TYMLOS [Suspect]
     Active Substance: ABALOPARATIDE
     Indication: Bone density decreased
     Dosage: UNK
     Dates: start: 202103, end: 202303
  2. TYMLOS [Suspect]
     Active Substance: ABALOPARATIDE
     Indication: Bone density abnormal
     Dosage: 40 MICROGRAM, QD
     Route: 058
     Dates: start: 20240327, end: 20240429
  3. TYMLOS [Suspect]
     Active Substance: ABALOPARATIDE
     Indication: Compression fracture
     Dosage: 20 MICROGRAM, QD
     Route: 058
     Dates: start: 20240429
  4. TYMLOS [Suspect]
     Active Substance: ABALOPARATIDE
     Dosage: 30 MICROGRAM, QD
     Route: 058
  5. PROLIXIN [Concomitant]
     Active Substance: FLUPHENAZINE HYDROCHLORIDE
     Indication: Product used for unknown indication
  6. FLUOXETINE [Concomitant]
     Active Substance: FLUOXETINE HYDROCHLORIDE
     Indication: Product used for unknown indication
  7. ANASTROZOLE [Concomitant]
     Active Substance: ANASTROZOLE
     Indication: Product used for unknown indication

REACTIONS (4)
  - Breast cancer [Unknown]
  - Pain in extremity [Not Recovered/Not Resolved]
  - Intentional product misuse [Not Recovered/Not Resolved]
  - Product prescribing issue [Not Recovered/Not Resolved]

NARRATIVE: CASE EVENT DATE: 20230101
